FAERS Safety Report 5060979-4 (Version None)
Quarter: 2006Q3

REPORT INFORMATION
  Report Type: 
  Country: None (occurrence: None)
  Receive Date: 20060720
  Receipt Date: 20060707
  Transmission Date: 20061208
  Serious: Yes (Other)
  Sender: FDA-Public Use
  Company Number: 2006-147

PATIENT

DRUGS (1)
  1. CITALOPRAM TABLETS [Suspect]
     Indication: DRUG EXPOSURE DURING PREGNANCY

REACTIONS (7)
  - DRUG EXPOSURE DURING PREGNANCY [None]
  - DRUG EXPOSURE VIA BREAST MILK [None]
  - DRUG WITHDRAWAL SYNDROME NEONATAL [None]
  - HYPERTONIA NEONATAL [None]
  - HYPOTONIA NEONATAL [None]
  - RESPIRATORY DISORDER NEONATAL [None]
  - SLEEP DISORDER [None]
